FAERS Safety Report 13212789 (Version 1)
Quarter: 2017Q1

REPORT INFORMATION
  Report Type: Spontaneous
  Country: US (occurrence: US)
  Receive Date: 20170210
  Receipt Date: 20170210
  Transmission Date: 20170428
  Serious: No
  Sender: FDA-Public Use
  Company Number: US-RISING PHARMACEUTICALS, INC.-2015RIS00183

PATIENT
  Sex: Male

DRUGS (2)
  1. FLONASE [Concomitant]
     Active Substance: FLUTICASONE PROPIONATE
     Dosage: UNK
  2. CIPROFLOXACIN. [Suspect]
     Active Substance: CIPROFLOXACIN

REACTIONS (2)
  - Nausea [Unknown]
  - Diarrhoea [Unknown]
